FAERS Safety Report 25245590 (Version 1)
Quarter: 2025Q2

REPORT INFORMATION
  Report Type: Spontaneous
  Country: US (occurrence: US)
  Receive Date: 20250428
  Receipt Date: 20250428
  Transmission Date: 20250716
  Serious: Yes (Hospitalization)
  Sender: MYLAN
  Company Number: US-MYLANLABS-2025M1035725

PATIENT
  Age: 91 Year
  Sex: Female

DRUGS (2)
  1. APIXABAN [Suspect]
     Active Substance: APIXABAN
     Indication: Anticoagulant therapy
  2. APIXABAN [Suspect]
     Active Substance: APIXABAN
     Indication: Atrial fibrillation

REACTIONS (5)
  - Subarachnoid haemorrhage [Recovering/Resolving]
  - Subdural haemorrhage [Recovering/Resolving]
  - Brain contusion [Recovering/Resolving]
  - Skull fractured base [Recovering/Resolving]
  - Fall [Recovering/Resolving]
